FAERS Safety Report 13521583 (Version 1)
Quarter: 2017Q2

REPORT INFORMATION
  Report Type: Spontaneous
  Country: US (occurrence: US)
  Receive Date: 20170506
  Receipt Date: 20170506
  Transmission Date: 20170830
  Serious: Yes (Other)
  Sender: FDA-Public Use
  Company Number: None

PATIENT
  Age: 16 Year
  Sex: Male
  Weight: 78.75 kg

DRUGS (1)
  1. VYVANSE [Suspect]
     Active Substance: LISDEXAMFETAMINE DIMESYLATE
     Indication: ATTENTION DEFICIT/HYPERACTIVITY DISORDER
     Route: 048
     Dates: start: 20170504, end: 20170505

REACTIONS (12)
  - Depressed mood [None]
  - Disturbance in attention [None]
  - Anger [None]
  - Decreased appetite [None]
  - Somnolence [None]
  - Suicidal ideation [None]
  - Mood altered [None]
  - Feeling abnormal [None]
  - Therapy change [None]
  - Apathy [None]
  - Abnormal behaviour [None]
  - Adverse drug reaction [None]

NARRATIVE: CASE EVENT DATE: 20170505
